FAERS Safety Report 19181199 (Version 4)
Quarter: 2021Q3

REPORT INFORMATION
  Report Type: Report from Study
  Country: GT (occurrence: GT)
  Receive Date: 20210426
  Receipt Date: 20210927
  Transmission Date: 20211014
  Serious: Yes (Life-Threatening, Hospitalization, Other)
  Sender: FDA-Public Use
  Company Number: NVSC2020GT158913

PATIENT
  Age: 41 Year
  Sex: Female
  Weight: 65 kg

DRUGS (12)
  1. XOLAIR [Suspect]
     Active Substance: OMALIZUMAB
     Dosage: 300 MG, EVERY 8 WEEKS
     Route: 065
     Dates: start: 20210708
  2. CETRIZINE [Concomitant]
     Active Substance: CETIRIZINE HYDROCHLORIDE
     Indication: HYPERSENSITIVITY
     Dosage: 10 MG
     Route: 065
  3. LEVOCETIRIZINE [Concomitant]
     Active Substance: LEVOCETIRIZINE
     Indication: HYPERSENSITIVITY
     Dosage: 5 MG
     Route: 065
  4. XOLAIR [Suspect]
     Active Substance: OMALIZUMAB
     Indication: URTICARIA CHRONIC
     Dosage: 300 MG, QMO
     Route: 058
     Dates: start: 201811
  5. ESOMEPRAZOLE. [Concomitant]
     Active Substance: ESOMEPRAZOLE MAGNESIUM
     Indication: GASTROOESOPHAGEAL REFLUX DISEASE
     Dosage: 40 MG, BID
     Route: 048
     Dates: start: 2020
  6. XOLAIR [Suspect]
     Active Substance: OMALIZUMAB
     Dosage: 300 MG, 7 TO 8 WEEKS
     Route: 065
  7. MEROPENEM. [Suspect]
     Active Substance: MEROPENEM
     Indication: PRODUCT USED FOR UNKNOWN INDICATION
     Dosage: UNK
     Route: 042
  8. XOLAIR [Suspect]
     Active Substance: OMALIZUMAB
     Dosage: UNK
     Route: 065
  9. EPINASTINE. [Concomitant]
     Active Substance: EPINASTINE HYDROCHLORIDE
     Indication: ANTIALLERGIC THERAPY
     Dosage: UNK
     Route: 031
  10. XOLAIR [Suspect]
     Active Substance: OMALIZUMAB
     Dosage: 150 MG (1 YEAR AND A HALF AGO)
     Route: 065
  11. AVAMYS [Concomitant]
     Active Substance: FLUTICASONE FUROATE
     Indication: RHINITIS
     Dosage: UNK
     Route: 045
  12. MONTELUKAST [Suspect]
     Active Substance: MONTELUKAST SODIUM
     Indication: ANTIALLERGIC THERAPY
     Dosage: 10 MG
     Route: 065

REACTIONS (22)
  - Arthritis [Unknown]
  - Joint swelling [Unknown]
  - Depression [Unknown]
  - Escherichia infection [Unknown]
  - Headache [Unknown]
  - Hypersensitivity [Unknown]
  - Blister [Unknown]
  - Fluid retention [Unknown]
  - Tracheal obstruction [Unknown]
  - Gastrointestinal infection [Unknown]
  - Adverse reaction [Unknown]
  - Fear [Unknown]
  - Weight increased [Unknown]
  - Nausea [Unknown]
  - Alopecia [Unknown]
  - Inflammation [Unknown]
  - Feeling abnormal [Unknown]
  - Vomiting [Unknown]
  - Pain [Unknown]
  - Urticaria [Unknown]
  - Muscle rigidity [Unknown]
  - Off label use [Unknown]

NARRATIVE: CASE EVENT DATE: 202003
